FAERS Safety Report 5550901-6 (Version None)
Quarter: 2007Q4

REPORT INFORMATION
  Report Type: 
  Country: None (occurrence: None)
  Receive Date: 20071210
  Receipt Date: 20071122
  Transmission Date: 20080405
  Serious: Yes (Life-Threatening, Hospitalization, Other)
  Sender: FDA-Public Use
  Company Number: S07-FRA-05254-01

PATIENT
  Age: 49 Year
  Sex: Male
  Weight: 80 kg

DRUGS (4)
  1. ESCITALOPRAM [Suspect]
     Indication: DEPRESSION
     Dosage: 10 MG QD PO
     Route: 048
     Dates: start: 20060602, end: 20060605
  2. PANTOPRAZOLE SODIUM [Concomitant]
  3. HAVLANE (LOPRAZOLAM MESILATE) [Concomitant]
  4. LEXOMIL (BROMAZEPAM) [Concomitant]

REACTIONS (7)
  - ANAEMIA [None]
  - ANXIETY [None]
  - ASPHYXIA [None]
  - IMPULSIVE BEHAVIOUR [None]
  - LACERATION [None]
  - SUICIDAL IDEATION [None]
  - SUICIDE ATTEMPT [None]
